FAERS Safety Report 7350606-5 (Version None)
Quarter: 2011Q1

REPORT INFORMATION
  Report Type: 
  Country: None (occurrence: None)
  Receive Date: 20110314
  Receipt Date: 20110303
  Transmission Date: 20110831
  Serious: Yes (Hospitalization)
  Sender: FDA-Public Use
  Company Number: CH-MERCK-1103USA00847

PATIENT
  Sex: Female

DRUGS (6)
  1. FOSAMAX [Suspect]
     Indication: OSTEOPOROSIS
     Route: 048
     Dates: start: 20000101, end: 20040101
  2. SYSTEN [Concomitant]
     Indication: HORMONE REPLACEMENT THERAPY
     Dosage: 25 PATCH
     Route: 065
  3. ACTONEL [Suspect]
     Indication: OSTEOPOROSIS
     Route: 048
     Dates: start: 20040101, end: 20070101
  4. BONIVA [Suspect]
     Indication: OSTEOPOROSIS
     Route: 048
     Dates: start: 20070101, end: 20101115
  5. SORTIS [Concomitant]
     Route: 048
  6. SYMFONA FORTE [Concomitant]
     Route: 048

REACTIONS (3)
  - FEMUR FRACTURE [None]
  - LOWER LIMB FRACTURE [None]
  - FALL [None]
